FAERS Safety Report 9103916 (Version 1)
Quarter: 2013Q1

REPORT INFORMATION
  Report Type: Spontaneous
  Country: GB (occurrence: None)
  Receive Date: 20130125
  Receipt Date: 20130125
  Transmission Date: 20140127
  Serious: Yes (Other)
  Sender: FDA-Public Use
  Company Number: 2013-00956

PATIENT
  Age: 64 Year
  Sex: Male
  Weight: 89 kg

DRUGS (8)
  1. DIAZEPAM (WATSON LABORATORIES) (DIAZEPAM) UNK, UNKUNK [Suspect]
     Indication: PRODUCT USED FOR UNKNOWN INDICATION
     Dates: start: 20121227
  2. ASPIRIN (ACETYLSALICYCLIC ACID) [Concomitant]
  3. CELECOXIB (CELECOXIB) [Concomitant]
  4. FELEODIPINE (FELODIPINE) [Concomitant]
  5. OMEPRAZOLE (OMEPRAZOLE) [Concomitant]
  6. PARACETAMOL (PARACETAMOL) [Concomitant]
  7. RAMIPRIL (RAMIPRIL) [Concomitant]
  8. TRAMADOL (TRAMADOL) [Concomitant]

REACTIONS (1)
  - Rash pruritic [None]
